FAERS Safety Report 9040428 (Version 1)
Quarter: 2013Q1

REPORT INFORMATION
  Report Type: Report from Study
  Country: US (occurrence: US)
  Receive Date: 20130129
  Receipt Date: 20130129
  Transmission Date: 20140127
  Serious: No
  Sender: FDA-Public Use
  Company Number: US-ABBOTT-12P-163-0893403-00

PATIENT
  Age: 55 Year
  Sex: Female
  Weight: 61.74 kg

DRUGS (4)
  1. HUMIRA 40 MG/0.8 ML PEN [Suspect]
     Indication: PSORIATIC ARTHROPATHY
     Route: 058
     Dates: start: 20120103
  2. SULFASALAZINE [Concomitant]
     Indication: PSORIATIC ARTHROPATHY
  3. MELOXICAM [Concomitant]
     Indication: OSTEOARTHRITIS
  4. GABAPENTIN [Concomitant]
     Indication: OSTEOARTHRITIS

REACTIONS (6)
  - Pruritus [Not Recovered/Not Resolved]
  - Erythema [Not Recovered/Not Resolved]
  - Rash [Not Recovered/Not Resolved]
  - Tenderness [Recovered/Resolved]
  - Contusion [Not Recovered/Not Resolved]
  - Injection site erythema [Recovered/Resolved]
